FAERS Safety Report 10178316 (Version 10)
Quarter: 2014Q3

REPORT INFORMATION
  Report Type: Report from Study
  Country: CA (occurrence: CA)
  Receive Date: 20140519
  Receipt Date: 20140813
  Transmission Date: 20150326
  Serious: Yes (Other)
  Sender: FDA-Public Use
  Company Number: CA-ROCHE-1113335

PATIENT
  Age: 61 Year
  Sex: Female
  Weight: 84.5 kg

DRUGS (12)
  1. AVASTIN [Suspect]
     Active Substance: BEVACIZUMAB
     Route: 042
     Dates: start: 20121024
  2. AVASTIN [Suspect]
     Active Substance: BEVACIZUMAB
     Route: 042
     Dates: start: 20121219
  3. CRESTOR [Concomitant]
     Active Substance: ROSUVASTATIN CALCIUM
  4. AVASTIN [Suspect]
     Active Substance: BEVACIZUMAB
     Route: 042
     Dates: start: 20130215
  5. GLUCOPHAGE [Concomitant]
     Active Substance: METFORMIN HYDROCHLORIDE
  6. GLUCERNA [Concomitant]
     Active Substance: AMINO ACIDS\DEXTROSE\ELECTROLYTES NOS\SOYBEAN OIL\VITAMINS
  7. AVASTIN [Suspect]
     Active Substance: BEVACIZUMAB
     Dosage: DOSE INTERRUPTED
     Route: 042
     Dates: start: 20140411
  8. AVASTIN [Suspect]
     Active Substance: BEVACIZUMAB
     Route: 042
     Dates: start: 20140718
  9. AVASTIN [Suspect]
     Active Substance: BEVACIZUMAB
     Indication: GLIOBLASTOMA
     Route: 042
     Dates: start: 20120817
  10. AVASTIN [Suspect]
     Active Substance: BEVACIZUMAB
     Route: 042
     Dates: start: 20130927
  11. COVERSYL [Concomitant]
     Active Substance: PERINDOPRIL
  12. ASPIRIN. [Concomitant]
     Active Substance: ASPIRIN
     Route: 065

REACTIONS (17)
  - Brain neoplasm [Unknown]
  - Contusion [Recovering/Resolving]
  - Neoplasm [Not Recovered/Not Resolved]
  - Decreased appetite [Unknown]
  - Rhinorrhoea [Not Recovered/Not Resolved]
  - Oral candidiasis [Unknown]
  - Platelet count decreased [Recovered/Resolved]
  - Cough [Not Recovered/Not Resolved]
  - Gingival bleeding [Unknown]
  - Oropharyngeal pain [Recovering/Resolving]
  - Balance disorder [Not Recovered/Not Resolved]
  - Weight decreased [Unknown]
  - Urticaria [Recovered/Resolved]
  - Nasopharyngitis [Recovered/Resolved]
  - Malignant neoplasm progression [Unknown]
  - Balance disorder [Unknown]
  - Fall [Recovering/Resolving]

NARRATIVE: CASE EVENT DATE: 20120825
